FAERS Safety Report 4269532-3 (Version None)
Quarter: 2004Q1

REPORT INFORMATION
  Report Type: 
  Country: None (occurrence: None)
  Receive Date: 20040113
  Receipt Date: 20040108
  Transmission Date: 20041129
  Serious: Yes (Death, Hospitalization)
  Sender: FDA-Public Use
  Company Number: PHRM2004FR00487

PATIENT
  Age: 26 Year
  Sex: Female
  Weight: 58 kg

DRUGS (6)
  1. SANDIMMUNE [Suspect]
     Indication: BONE MARROW TRANSPLANT
     Route: 042
     Dates: start: 20031001
  2. GLEEVEC [Suspect]
     Indication: CHRONIC MYELOID LEUKAEMIA
     Route: 048
     Dates: start: 20000101, end: 20031016
  3. METHOTREXATE [Suspect]
     Indication: BONE MARROW TRANSPLANT
     Dates: start: 20031001
  4. ANTILYMPHOCYTE SERUM [Suspect]
     Indication: BONE MARROW TRANSPLANT
     Dosage: 5 AMPOULES PER DAY FOR 3 DAYS
     Route: 042
     Dates: start: 20031001
  5. COLIMICIN [Concomitant]
     Indication: INFECTION PROPHYLAXIS
     Dates: start: 20031001
  6. GENTAMICIN [Concomitant]
     Indication: INFECTION PROPHYLAXIS
     Dates: start: 20031001

REACTIONS (7)
  - APLASIA [None]
  - BONE MARROW TRANSPLANT [None]
  - LUNG INFECTION [None]
  - MUCOSAL INFLAMMATION [None]
  - RESPIRATORY DISTRESS [None]
  - SEPTIC SHOCK [None]
  - STREPTOCOCCAL SEPSIS [None]
